FAERS Safety Report 14688736 (Version 2)
Quarter: 2018Q2

REPORT INFORMATION
  Report Type: Report from Study
  Country: CZ (occurrence: CZ)
  Receive Date: 20180328
  Receipt Date: 20180517
  Transmission Date: 20180711
  Serious: Yes (Hospitalization, Other)
  Sender: FDA-Public Use
  Company Number: CZ-AUROBINDO-AUR-APL-2018-016308

PATIENT
  Age: 82 Year

DRUGS (2)
  1. METFORMIN [Suspect]
     Active Substance: METFORMIN HYDROCHLORIDE
     Indication: TYPE 2 DIABETES MELLITUS
     Dosage: UNK
     Route: 065
  2. METFORMIN [Suspect]
     Active Substance: METFORMIN HYDROCHLORIDE
     Dosage: 1000
     Route: 048

REACTIONS (20)
  - Hypokalaemia [Unknown]
  - Acid-base balance disorder mixed [Unknown]
  - Anion gap increased [Unknown]
  - Toxicity to various agents [Unknown]
  - Hypovolaemia [Unknown]
  - Hyperglycaemia [Unknown]
  - Blood bicarbonate decreased [Unknown]
  - Blood pH increased [Unknown]
  - Base excess decreased [Unknown]
  - Hypocapnia [Unknown]
  - Blood magnesium decreased [Unknown]
  - Blood lactic acid increased [Unknown]
  - Lactic acidosis [Unknown]
  - PCO2 decreased [Unknown]
  - Blood chloride decreased [Unknown]
  - Oxygen saturation decreased [Unknown]
  - Acute kidney injury [Unknown]
  - Gastrointestinal disorder [Unknown]
  - Metabolic acidosis [Unknown]
  - Creatinine renal clearance decreased [Unknown]

NARRATIVE: CASE EVENT DATE: 2015
